FAERS Safety Report 5407047-7 (Version None)
Quarter: 2007Q3

REPORT INFORMATION
  Report Type: 
  Country: None (occurrence: None)
  Receive Date: 20070807
  Receipt Date: 20070731
  Transmission Date: 20080115
  Serious: Yes (Hospitalization)
  Sender: FDA-Public Use
  Company Number: US-AVENTIS-200712700US

PATIENT
  Sex: Female

DRUGS (7)
  1. LANTUS [Suspect]
     Route: 051
     Dates: start: 20061001
  2. OPTICLIK (INSULIN INJECTION PEN) [Suspect]
  3. PLAVIX [Suspect]
     Indication: CORONARY ARTERY DISEASE
     Route: 048
     Dates: start: 20040101
  4. ASPIRIN [Concomitant]
     Dosage: DOSE: UNK
  5. NOVOLOG [Concomitant]
     Dosage: DOSE: UNK
  6. INNOLET N [Concomitant]
     Dosage: DOSE: UNK
  7. UNKNOWN DRUG [Concomitant]

REACTIONS (6)
  - BLOOD GLUCOSE INCREASED [None]
  - DYSPNOEA [None]
  - HAEMATOCHEZIA [None]
  - HAEMORRHAGE [None]
  - HEADACHE [None]
  - PAIN [None]
